FAERS Safety Report 5009844-9 (Version None)
Quarter: 2006Q2

REPORT INFORMATION
  Report Type: 
  Country: None (occurrence: None)
  Receive Date: 20060522
  Receipt Date: 20060508
  Transmission Date: 20061013
  Serious: Yes (Death, Hospitalization)
  Sender: FDA-Public Use
  Company Number: 028-C5013-06010145

PATIENT
  Age: 61 Year
  Sex: Male
  Weight: 48.6 kg

DRUGS (5)
  1. REVLIMID [Suspect]
     Indication: MULTIPLE MYELOMA
     Dosage: 15 MG, QD, ORAL
     Route: 048
     Dates: start: 20051222, end: 20051227
  2. DEXAMETHASONE [Suspect]
     Indication: MULTIPLE MYELOMA
     Dates: start: 20051222, end: 20051227
  3. FENTANYL [Concomitant]
  4. OXYCODONE [Concomitant]
  5. SYNTHROID [Concomitant]

REACTIONS (11)
  - ATELECTASIS [None]
  - CREPITATIONS [None]
  - DEHYDRATION [None]
  - DYSPNOEA [None]
  - HEART RATE INCREASED [None]
  - MALIGNANT NEOPLASM PROGRESSION [None]
  - MULTIPLE MYELOMA [None]
  - PANCYTOPENIA [None]
  - PERICARDIAL EFFUSION [None]
  - PLEURAL EFFUSION [None]
  - RESPIRATORY RATE INCREASED [None]
